FAERS Safety Report 6790646-8 (Version None)
Quarter: 2010Q2

REPORT INFORMATION
  Report Type: 
  Country: None (occurrence: None)
  Receive Date: 20100624
  Receipt Date: 20100615
  Transmission Date: 20101027
  Serious: Yes (Other)
  Sender: FDA-Public Use
  Company Number: ES-CELGENEUS-144-21880-10052593

PATIENT
  Sex: Male

DRUGS (9)
  1. REVLIMID [Suspect]
     Indication: MULTIPLE MYELOMA
     Route: 048
     Dates: start: 20080701
  2. REVLIMID [Suspect]
     Route: 048
     Dates: end: 20090101
  3. REVLIMID [Suspect]
     Route: 048
  4. ZOLEDRONIC ACID [Suspect]
     Indication: PROPHYLAXIS
     Route: 065
     Dates: start: 20071101, end: 20080501
  5. DEXAMETHASONE ACETATE [Concomitant]
     Indication: MULTIPLE MYELOMA
     Route: 065
     Dates: start: 20080701, end: 20090101
  6. DEXAMETHASONE ACETATE [Concomitant]
     Route: 065
  7. ASPIRIN [Concomitant]
     Indication: THROMBOSIS PROPHYLAXIS
     Route: 065
     Dates: start: 20080701
  8. CALCIUM CARBONATE [Concomitant]
     Indication: PROPHYLAXIS
     Route: 065
     Dates: start: 20090601
  9. VITAMIN D [Concomitant]
     Indication: PROPHYLAXIS
     Route: 065
     Dates: start: 20090601

REACTIONS (1)
  - OSTEONECROSIS OF JAW [None]
